FAERS Safety Report 11850988 (Version 1)
Quarter: 2015Q4

REPORT INFORMATION
  Report Type: Spontaneous
  Country: US (occurrence: US)
  Receive Date: 20151218
  Receipt Date: 20151218
  Transmission Date: 20160305
  Serious: No
  Sender: FDA-Public Use
  Company Number: US-JNJFOC-20150323586

PATIENT
  Sex: Male
  Weight: 83.92 kg

DRUGS (9)
  1. BIOTIN [Concomitant]
     Active Substance: BIOTIN
     Route: 065
  2. DILTIAZEM [Concomitant]
     Active Substance: DILTIAZEM
     Route: 065
  3. ACAMPROSATE [Concomitant]
     Active Substance: ACAMPROSATE
     Route: 065
  4. URINOZINC [Concomitant]
     Indication: PROSTATIC DISORDER
     Route: 065
  5. FOLIC ACID. [Concomitant]
     Active Substance: FOLIC ACID
     Indication: ROUTINE HEALTH MAINTENANCE
     Route: 065
  6. MENS ROGAINE EXTRA STRENGTH [Suspect]
     Active Substance: MINOXIDIL
     Route: 061
  7. CENTRUM SILVER [Concomitant]
     Active Substance: MINERALS\VITAMINS
     Indication: ROUTINE HEALTH MAINTENANCE
     Route: 065
  8. DULOXETINE. [Concomitant]
     Active Substance: DULOXETINE
     Indication: CARDIAC DISORDER
     Route: 065
  9. MENS ROGAINE EXTRA STRENGTH [Suspect]
     Active Substance: MINOXIDIL
     Indication: ALOPECIA
     Dosage: HALF A CAPFUL
     Route: 061

REACTIONS (2)
  - Erythema [Not Recovered/Not Resolved]
  - Alopecia [Not Recovered/Not Resolved]
